FAERS Safety Report 25360275 (Version 1)
Quarter: 2025Q2

REPORT INFORMATION
  Report Type: Spontaneous
  Country: US (occurrence: US)
  Receive Date: 20250527
  Receipt Date: 20250527
  Transmission Date: 20250717
  Serious: Yes (Other)
  Sender: ACCORD
  Company Number: US-Accord-450274

PATIENT
  Sex: Female

DRUGS (19)
  1. METHOTREXATE [Suspect]
     Active Substance: METHOTREXATE
     Indication: Product used for unknown indication
  2. PREDNISONE [Concomitant]
     Active Substance: PREDNISONE
  3. MEDROL [Concomitant]
     Active Substance: METHYLPREDNISOLONE
  4. LEFLUNOMIDE [Concomitant]
     Active Substance: LEFLUNOMIDE
  5. ACETAMINOPHEN [Concomitant]
     Active Substance: ACETAMINOPHEN
  6. BENICAR [Concomitant]
     Active Substance: OLMESARTAN MEDOXOMIL
  7. BYSTOLIC [Concomitant]
     Active Substance: NEBIVOLOL HYDROCHLORIDE
  8. COLCHICINE [Concomitant]
     Active Substance: COLCHICINE
  9. VITAMINS [Concomitant]
     Active Substance: VITAMINS
  10. DICLOFENAC [Concomitant]
     Active Substance: DICLOFENAC
  11. DULERA [Concomitant]
     Active Substance: FORMOTEROL FUMARATE DIHYDRATE\MOMETASONE FUROATE
  12. ELIQUIS [Concomitant]
     Active Substance: APIXABAN
  13. GABAPENTIN [Concomitant]
     Active Substance: GABAPENTIN
  14. LORAZEPAM [Concomitant]
     Active Substance: LORAZEPAM
  15. TORSEMIDE [Concomitant]
     Active Substance: TORSEMIDE
  16. VENTOLIN [Concomitant]
     Active Substance: ALBUTEROL SULFATE
  17. SYNTHROID [Concomitant]
     Active Substance: LEVOTHYROXINE SODIUM
  18. SINGULAIR [Concomitant]
     Active Substance: MONTELUKAST SODIUM
  19. ZYRTEC [Concomitant]
     Active Substance: CETIRIZINE HYDROCHLORIDE

REACTIONS (1)
  - Pneumonitis [Unknown]
